FAERS Safety Report 16987106 (Version 1)
Quarter: 2019Q4

REPORT INFORMATION
  Report Type: Spontaneous
  Country: AT (occurrence: AT)
  Receive Date: 20191102
  Receipt Date: 20191102
  Transmission Date: 20200122
  Serious: Yes (Hospitalization)
  Sender: FDA-Public Use
  Company Number: AT-TEVA-2019-AT-1130478

PATIENT
  Age: 44 Year
  Sex: Male

DRUGS (1)
  1. NAPROBENE [Suspect]
     Active Substance: NAPROXEN
     Dosage: NAPROBENE- 250 MG - FILM-COATED TABLETS
     Route: 048
     Dates: start: 20190305, end: 20190305

REACTIONS (4)
  - Dyspnoea [Recovered/Resolved]
  - Type I hypersensitivity [Recovered/Resolved]
  - Pruritus [Recovered/Resolved]
  - Dermatitis exfoliative generalised [Recovered/Resolved]

NARRATIVE: CASE EVENT DATE: 20190305
